FAERS Safety Report 6696069-4 (Version None)
Quarter: 2010Q2

REPORT INFORMATION
  Report Type: 
  Country: None (occurrence: None)
  Receive Date: 20100426
  Receipt Date: 20100415
  Transmission Date: 20101027
  Serious: Yes (Hospitalization, Other)
  Sender: FDA-Public Use
  Company Number: PHHY2010JP23678

PATIENT
  Age: 71 Year
  Sex: Female

DRUGS (2)
  1. ICL670A ICL+DISTAB [Suspect]
     Indication: MYELODYSPLASTIC SYNDROME
     Dosage: 875 MG DAILY
     Route: 048
     Dates: start: 20090714, end: 20090817
  2. ICL670A ICL+DISTAB [Suspect]
     Indication: IRON OVERLOAD
     Dosage: 125 MG DAILY
     Route: 048
     Dates: start: 20090901, end: 20090906

REACTIONS (5)
  - DECREASED APPETITE [None]
  - EOSINOPHIL COUNT INCREASED [None]
  - LIVER DISORDER [None]
  - MALAISE [None]
  - PYREXIA [None]
